FAERS Safety Report 12621926 (Version 1)
Quarter: 2016Q3

REPORT INFORMATION
  Report Type: Spontaneous
  Country: US (occurrence: None)
  Receive Date: 20160803
  Receipt Date: 20160803
  Transmission Date: 20161109
  Serious: Yes (Death)
  Sender: FDA-Public Use
  Company Number: None

PATIENT
  Age: 51 Year
  Sex: Female
  Weight: 84 kg

DRUGS (2)
  1. KETOROLAC, 30 MG/ML [Suspect]
     Active Substance: KETOROLAC\KETOROLAC TROMETHAMINE
     Indication: PAIN
     Route: 040
  2. ENOXAPARIN, 40 MG [Suspect]
     Active Substance: ENOXAPARIN
     Indication: THROMBOSIS PROPHYLAXIS
     Route: 058

REACTIONS (5)
  - Gastrointestinal haemorrhage [None]
  - Cardio-respiratory arrest [None]
  - Aspiration [None]
  - Pulseless electrical activity [None]
  - Haematemesis [None]

NARRATIVE: CASE EVENT DATE: 20150403
